FAERS Safety Report 6139925-8 (Version None)
Quarter: 2009Q1

REPORT INFORMATION
  Report Type: 
  Country: None (occurrence: None)
  Receive Date: 20090324
  Receipt Date: 20090316
  Transmission Date: 20090719
  Serious: Yes (Other)
  Sender: FDA-Public Use
  Company Number: GXKR2009GB03365

PATIENT
  Age: 86 Year
  Sex: Female
  Weight: 60 kg

DRUGS (10)
  1. WARFARIN SODIUM [Suspect]
  2. RASAGILINE (RASAGILINE) [Suspect]
     Dosage: ORAL
     Route: 048
     Dates: start: 20090303, end: 20090306
  3. CITALOPRAM HYDROBROMIDE [Concomitant]
  4. DIGOXIN [Concomitant]
  5. LISINOPRIL [Concomitant]
  6. OMEPRAZOLE [Concomitant]
  7. ACETAMINOPHEN [Concomitant]
  8. ROPINIROLE [Concomitant]
  9. SIMVASTATIN [Concomitant]
  10. SINEMET CR [Concomitant]

REACTIONS (3)
  - DRUG INTERACTION [None]
  - INTERNATIONAL NORMALISED RATIO INCREASED [None]
  - TREMOR [None]
